FAERS Safety Report 5862697-9 (Version None)
Quarter: 2008Q3

REPORT INFORMATION
  Report Type: 
  Country: None (occurrence: None)
  Receive Date: 20080827
  Receipt Date: 20080827
  Transmission Date: 20090109
  Serious: Yes (Other)
  Sender: FDA-Public Use
  Company Number: None

PATIENT
  Age: 31 Year
  Sex: Male
  Weight: 79.5 kg

DRUGS (1)
  1. ZOSYN [Suspect]
     Indication: COLITIS
     Dosage: 3.375 G OVER 30 MINUTES IV
     Route: 042
     Dates: start: 20080821, end: 20080822

REACTIONS (3)
  - CHOLELITHIASIS [None]
  - MURPHY'S SIGN POSITIVE [None]
  - RASH GENERALISED [None]
